FAERS Safety Report 16153816 (Version 3)
Quarter: 2019Q2

REPORT INFORMATION
  Report Type: Spontaneous
  Country: US (occurrence: US)
  Receive Date: 20190403
  Receipt Date: 20190524
  Transmission Date: 20190711
  Serious: Yes (Other)
  Sender: FDA-Public Use
  Company Number: US-PFIZER INC-2019135719

PATIENT
  Age: 62 Year
  Sex: Female
  Weight: 81.63 kg

DRUGS (1)
  1. LYRICA [Suspect]
     Active Substance: PREGABALIN
     Dosage: 250 MG, DAILY (150 MG AT NIGHT AND 100 MG IN THE MORNING)

REACTIONS (5)
  - Hypersomnia [Unknown]
  - Deafness neurosensory [Unknown]
  - Weight increased [Unknown]
  - Hypoacusis [Unknown]
  - Fatigue [Not Recovered/Not Resolved]
